FAERS Safety Report 8480576 (Version 6)
Quarter: 2012Q4

REPORT INFORMATION
  Report Type: 
  Country: US (occurrence: US)
  Receive Date: 20120328
  Receipt Date: 20121220
  Transmission Date: 20130627
  Serious: Yes (Hospitalization, Disabling, Other)
  Sender: FDA-Public Use
  Company Number: US-009507513-1203USA03296

PATIENT

DRUGS (6)
  1. FOSAMAX [Suspect]
     Indication: OSTEOPOROSIS
     Dosage: 10 mg, qd
     Dates: start: 199907, end: 200104
  2. FOSAMAX [Suspect]
     Dosage: 70 mg, qw
     Route: 048
     Dates: start: 20010406, end: 20040324
  3. LEVOXYL [Concomitant]
     Dosage: UNK
  4. CALCIUM (UNSPECIFIED) (+) VITAMIN D (UNSPECIFIED) [Concomitant]
     Indication: OSTEOPOROSIS
  5. MIACALCIN [Concomitant]
  6. ESTROGENS (UNSPECIFIED) [Concomitant]

REACTIONS (62)
  - Hip fracture [Unknown]
  - Low turnover osteopathy [Unknown]
  - Osteoporosis [Unknown]
  - Stress fracture [Unknown]
  - Femur fracture [Unknown]
  - Tonsillectomy [Unknown]
  - Myocardial infarction [Unknown]
  - Fatigue [Unknown]
  - Psychotic disorder [Unknown]
  - Thyrotoxic crisis [Unknown]
  - Muscular weakness [Unknown]
  - Weight decreased [Unknown]
  - Pneumonia [Unknown]
  - Hypotension [Unknown]
  - Femur fracture [Unknown]
  - Femur fracture [Unknown]
  - Tooth extraction [Unknown]
  - Osteopenia [Unknown]
  - Asthma [Unknown]
  - Asthma [Unknown]
  - Melanocytic naevus [Unknown]
  - Breast abscess [Recovered/Resolved]
  - Fibromyalgia [Unknown]
  - Spinal osteoarthritis [Unknown]
  - Osteoarthritis [Unknown]
  - Large intestine polyp [Unknown]
  - Mitral valve incompetence [Unknown]
  - Nephrolithiasis [Unknown]
  - Rheumatic fever [Unknown]
  - Chest pain [Unknown]
  - Spinal pain [Unknown]
  - Bronchitis [Unknown]
  - Hypoglycaemia [Unknown]
  - Fall [Unknown]
  - Fatigue [Unknown]
  - Weight loss poor [Unknown]
  - Depression [Unknown]
  - Weight decreased [Unknown]
  - Hypoglycaemia [Unknown]
  - Diverticulum [Unknown]
  - Carotid artery stent insertion [Unknown]
  - Calculus ureteric [Unknown]
  - Lithotripsy [Unknown]
  - Calculus ureteric [Unknown]
  - Chest discomfort [Recovered/Resolved]
  - Bursitis [Unknown]
  - Bronchitis [Unknown]
  - Haematuria [Recovered/Resolved]
  - Vomiting [Unknown]
  - Headache [Unknown]
  - Musculoskeletal pain [Unknown]
  - Oedema peripheral [Unknown]
  - Diarrhoea [Unknown]
  - Arthralgia [Unknown]
  - Off label use [Unknown]
  - Drug ineffective [Unknown]
  - Nausea [Unknown]
  - Vomiting [Unknown]
  - Headache [Unknown]
  - Drug hypersensitivity [Unknown]
  - Arthralgia [Unknown]
  - Pain in extremity [Unknown]
